FAERS Safety Report 5256026-1 (Version None)
Quarter: 2007Q1

REPORT INFORMATION
  Report Type: 
  Country: None (occurrence: None)
  Receive Date: 20070306
  Receipt Date: 20070223
  Transmission Date: 20070707
  Serious: Yes (Other)
  Sender: FDA-Public Use
  Company Number: PHHO2006IT21285

PATIENT
  Age: 70 Year
  Sex: Female

DRUGS (5)
  1. ZOLEDRONIC ACID [Suspect]
     Indication: METASTASES TO BONE
     Dosage: 4MG EVERY 28 DAYS
     Route: 042
     Dates: start: 20061004, end: 20061031
  2. NIMESULIDE [Concomitant]
  3. VITAMIN D [Concomitant]
  4. CALCIUM [Concomitant]
  5. FEMARA [Concomitant]
     Dates: start: 20051118

REACTIONS (12)
  - BACTERIAL INFECTION [None]
  - BONE LESION [None]
  - ERYTHEMA [None]
  - FISTULA [None]
  - GINGIVAL INFECTION [None]
  - ORAL INTAKE REDUCED [None]
  - OSTEOMYELITIS [None]
  - OSTEONECROSIS [None]
  - PAIN [None]
  - SOFT TISSUE INFECTION [None]
  - SURGERY [None]
  - SWELLING [None]
